FAERS Safety Report 23289455 (Version 1)
Quarter: 2023Q4

REPORT INFORMATION
  Report Type: Other
  Country: LV (occurrence: LV)
  Receive Date: 20231212
  Receipt Date: 20231212
  Transmission Date: 20240110
  Serious: Yes (Hospitalization, Other)
  Sender: FDA-Public Use
  Company Number: LV-Merck Healthcare KGaA-2023492282

PATIENT
  Age: 71 Year
  Sex: Female

DRUGS (1)
  1. METFORMIN [Suspect]
     Active Substance: METFORMIN HYDROCHLORIDE
     Indication: Type 2 diabetes mellitus

REACTIONS (8)
  - Hallucination [Unknown]
  - Dizziness [Unknown]
  - Speech disorder [Unknown]
  - Hypovolaemia [Unknown]
  - Hyperkalaemia [Recovering/Resolving]
  - Renal impairment [Recovering/Resolving]
  - Lactic acidosis [Unknown]
  - Weight decreased [Unknown]
